FAERS Safety Report 5296418-8 (Version None)
Quarter: 2007Q2

REPORT INFORMATION
  Report Type: 
  Country: None (occurrence: None)
  Receive Date: 20070413
  Receipt Date: 20070403
  Transmission Date: 20071010
  Serious: Yes (Other)
  Sender: FDA-Public Use
  Company Number: JP-ROCHE-491743

PATIENT
  Sex: Male

DRUGS (4)
  1. TAMIFLU [Suspect]
     Indication: INFLUENZA
     Dosage: FORM: DRY SYRUP.
     Route: 048
     Dates: start: 20060125, end: 20060129
  2. HUSTAZOL [Concomitant]
     Dosage: GENERIC NAME: CLOPERASTINE FENDIZOATE.
     Route: 048
  3. MUCODYNE [Concomitant]
     Route: 048
  4. TELGIN G [Concomitant]
     Dosage: GENERIC NAME: CLEMASTINE FUMARATE.
     Route: 048

REACTIONS (1)
  - HYPOTHERMIA [None]
